FAERS Safety Report 21253452 (Version 1)
Quarter: 2022Q3

REPORT INFORMATION
  Report Type: Spontaneous
  Country: CN (occurrence: None)
  Receive Date: 20220825
  Receipt Date: 20220825
  Transmission Date: 20221026
  Serious: Yes (Other)
  Sender: FDA-Public Use
  Company Number: 2022A292738

PATIENT
  Age: 27394 Day
  Sex: Female
  Weight: 50 kg

DRUGS (2)
  1. OSIMERTINIB MESYLATE [Suspect]
     Active Substance: OSIMERTINIB MESYLATE
     Indication: Lung neoplasm malignant
     Route: 048
     Dates: start: 20220730, end: 20220808
  2. ICOTINIB [Concomitant]
     Active Substance: ICOTINIB
     Dates: start: 202102, end: 202107

REACTIONS (3)
  - Agranulocytosis [Recovering/Resolving]
  - Blood electrolytes abnormal [Recovering/Resolving]
  - Hypophagia [Unknown]

NARRATIVE: CASE EVENT DATE: 20220731
